FAERS Safety Report 8729348 (Version 2)
Quarter: 2012Q4

REPORT INFORMATION
  Report Type: 
  Country: AU (occurrence: AU)
  Receive Date: 20120817
  Receipt Date: 20120925
  Transmission Date: 20130627
  Serious: Yes (Hospitalization)
  Sender: FDA-Public Use
  Company Number: AU-PFIZER INC-2012196340

PATIENT
  Sex: Male

DRUGS (1)
  1. EFEXOR XR [Suspect]
     Indication: ANXIETY
     Dosage: UNK
     Dates: end: 2011

REACTIONS (3)
  - Post-traumatic stress disorder [Not Recovered/Not Resolved]
  - Depression [Not Recovered/Not Resolved]
  - Withdrawal syndrome [Not Recovered/Not Resolved]
